FAERS Safety Report 13268294 (Version 1)
Quarter: 2017Q1

REPORT INFORMATION
  Report Type: Spontaneous
  Country: GB (occurrence: GB)
  Receive Date: 20170224
  Receipt Date: 20170224
  Transmission Date: 20170428
  Serious: Yes (Other)
  Sender: FDA-Public Use
  Company Number: GB-PFIZER INC-2017076491

PATIENT
  Age: 86 Year
  Sex: Female
  Weight: 39 kg

DRUGS (9)
  1. TIOTROPIUM [Concomitant]
     Active Substance: TIOTROPIUM
     Dosage: 1 DF, 1X/DAY
     Dates: start: 20141023
  2. VENTOLIN [Concomitant]
     Active Substance: ALBUTEROL SULFATE
     Dosage: 2 DF, 4X/DAY
     Route: 055
     Dates: start: 20161212, end: 20170109
  3. SALAMOL /00139501/ [Concomitant]
     Dosage: ONE OR TWO PUFFS TO BE INHALED UP TO FOUR TIMES
     Route: 055
     Dates: start: 20160413
  4. DOXYCYCLINE MONOHYDRATE [Suspect]
     Active Substance: DOXYCYCLINE
     Dosage: UNK
     Dates: start: 20170206
  5. ADCAL /07357001/ [Concomitant]
     Dosage: 1 DF, 2X/DAY, LEMON
     Dates: start: 20130409
  6. SYMBICORT [Concomitant]
     Active Substance: BUDESONIDE\FORMOTEROL FUMARATE DIHYDRATE
     Dosage: 1 DF, 2X/DAY
     Dates: start: 20090903
  7. WARFARIN SODIUM. [Concomitant]
     Active Substance: WARFARIN SODIUM
     Dosage: TAKE AS PRESCRIBED IN ANTICOAGULANT TREATMENT BOOK
     Dates: start: 20140401
  8. ERYTHROMYCIN. [Concomitant]
     Active Substance: ERYTHROMYCIN
     Dosage: 1 DF, 4X/DAY
     Dates: start: 20170206
  9. PREDNISOLONE. [Concomitant]
     Active Substance: PREDNISOLONE
     Dosage: 6 DF, 1X/DAY, IN MORNING AFTER FOOD
     Dates: start: 20170202, end: 20170207

REACTIONS (1)
  - Suicidal ideation [Unknown]

NARRATIVE: CASE EVENT DATE: 20170207
